FAERS Safety Report 21002156 (Version 1)
Quarter: 2022Q2

REPORT INFORMATION
  Report Type: Spontaneous
  Country: FR (occurrence: FR)
  Receive Date: 20220624
  Receipt Date: 20220624
  Transmission Date: 20220720
  Serious: Yes (Hospitalization)
  Sender: FDA-Public Use
  Company Number: None

PATIENT
  Age: 64 Year
  Sex: Male
  Weight: 99 kg

DRUGS (3)
  1. FLUOROURACIL [Suspect]
     Active Substance: FLUOROURACIL
     Indication: Tongue neoplasm malignant stage unspecified
     Dosage: DURATION- 4 DAYS
     Route: 042
     Dates: start: 20201007, end: 20201011
  2. CISPLATIN [Suspect]
     Active Substance: CISPLATIN
     Indication: Tongue neoplasm malignant stage unspecified
     Dosage: DURATION 4 DAYS
     Route: 042
     Dates: start: 20201007, end: 20201011
  3. TAXOTERE [Suspect]
     Active Substance: DOCETAXEL
     Indication: Tongue neoplasm malignant stage unspecified
     Dosage: DURATION- 4 DAYS
     Route: 042
     Dates: start: 20201007, end: 20201011

REACTIONS (3)
  - Bone marrow failure [Recovered/Resolved]
  - Acute kidney injury [Recovering/Resolving]
  - Colitis [Recovered/Resolved]

NARRATIVE: CASE EVENT DATE: 20201014
